FAERS Safety Report 10648394 (Version 21)
Quarter: 2018Q4

REPORT INFORMATION
  Report Type: Report from Study
  Country: BR (occurrence: BR)
  Receive Date: 20141212
  Receipt Date: 20181021
  Transmission Date: 20190204
  Serious: Yes (Hospitalization, Other)
  Sender: FDA-Public Use
  Company Number: PHHY2014BR017744

PATIENT
  Age: 5 Year
  Sex: Female
  Weight: 40 kg

DRUGS (10)
  1. AFINITOR [Suspect]
     Active Substance: EVEROLIMUS
     Indication: TUBEROUS SCLEROSIS COMPLEX
     Dosage: 5 MG, QD
     Route: 048
     Dates: start: 20110608, end: 201509
  2. AFINITOR [Suspect]
     Active Substance: EVEROLIMUS
     Dosage: 7.5 MG, QD
     Route: 048
     Dates: start: 201509
  3. AFINITOR [Suspect]
     Active Substance: EVEROLIMUS
     Dosage: 10 MG, QD
     Route: 048
     Dates: end: 20180801
  4. AFINITOR [Suspect]
     Active Substance: EVEROLIMUS
     Dosage: UNK
     Route: 048
     Dates: start: 20180320, end: 20180404
  5. AFINITOR [Suspect]
     Active Substance: EVEROLIMUS
     Dosage: 10 MG, QD
     Route: 048
     Dates: start: 20180820
  6. VERTIX//BETAHISTINE HYDROCHLORIDE [Concomitant]
     Indication: DIZZINESS
     Route: 048
  7. CLOBAZAM. [Concomitant]
     Active Substance: CLOBAZAM
     Dosage: 10 MG, UNK
     Route: 048
     Dates: start: 20150819, end: 20180801
  8. HIXIZINE [Concomitant]
     Active Substance: HYDROXYZINE HYDROCHLORIDE
     Indication: PRURITUS
     Route: 065
  9. CLOBAZAM. [Concomitant]
     Active Substance: CLOBAZAM
     Indication: ANXIETY
     Dosage: 5 MG, UNK
     Route: 048
  10. AMOXICILLIN AND CLAVULANATE POTASSIUM [Concomitant]
     Active Substance: AMOXICILLIN\CLAVULANATE POTASSIUM
     Indication: ANTIBIOTIC PROPHYLAXIS
     Dosage: UNK
     Route: 048
     Dates: start: 20180809, end: 20180815

REACTIONS (57)
  - Pneumonia [Recovered/Resolved]
  - Generalised tonic-clonic seizure [Recovered/Resolved]
  - Seizure [Recovered/Resolved]
  - Pneumonia [Recovered/Resolved]
  - Productive cough [Unknown]
  - Skin oedema [Unknown]
  - Hyperaemia [Recovered/Resolved]
  - Oropharyngeal pain [Recovered/Resolved]
  - Conjunctivitis bacterial [Not Recovered/Not Resolved]
  - Mouth ulceration [Recovered/Resolved]
  - Rhinorrhoea [Recovered/Resolved]
  - Nasal disorder [Recovered/Resolved]
  - Hypophagia [Recovered/Resolved]
  - Hyperaemia [Not Recovered/Not Resolved]
  - Odynophagia [Recovered/Resolved]
  - Vaginal haemorrhage [Unknown]
  - Hordeolum [Recovered/Resolved]
  - Erythema [Recovered/Resolved]
  - Pyrexia [Recovered/Resolved]
  - Pyrexia [Recovered/Resolved]
  - Generalised tonic-clonic seizure [Recovered/Resolved]
  - Tonsillitis [Recovered/Resolved]
  - Aphthous ulcer [Unknown]
  - Hyperaemia [Recovered/Resolved]
  - Blood triglycerides increased [Not Recovered/Not Resolved]
  - Mucosal inflammation [Unknown]
  - Pyrexia [Recovered/Resolved]
  - Blood albumin decreased [Not Recovered/Not Resolved]
  - Hypercholesterolaemia [Not Recovered/Not Resolved]
  - Pyrexia [Recovered/Resolved]
  - Pleural effusion [Recovered/Resolved]
  - Febrile convulsion [Recovered/Resolved]
  - Breath odour [Recovered/Resolved]
  - Pyrexia [Unknown]
  - Papule [Recovered/Resolved]
  - Pyrexia [Recovered/Resolved]
  - Cough [Recovered/Resolved]
  - Febrile convulsion [Recovered/Resolved]
  - Pleural effusion [Recovered/Resolved]
  - Dyspnoea exertional [Recovered/Resolved]
  - Productive cough [Recovered/Resolved]
  - Hypertrichosis [Not Recovered/Not Resolved]
  - Diarrhoea [Recovered/Resolved]
  - Pyrexia [Recovered/Resolved]
  - Tonsillitis [Not Recovered/Not Resolved]
  - Pyrexia [Recovered/Resolved]
  - Seizure [Recovered/Resolved]
  - Aphthous ulcer [Recovered/Resolved]
  - Productive cough [Recovered/Resolved]
  - Hyperaemia [Recovered/Resolved]
  - Oropharyngeal pain [Recovered/Resolved]
  - Oropharyngeal pain [Recovered/Resolved]
  - Pyrexia [Recovered/Resolved]
  - Aphthous ulcer [Recovered/Resolved]
  - Pyrexia [Recovered/Resolved]
  - Stomatitis [Recovered/Resolved]
  - Varicella [Recovered/Resolved]

NARRATIVE: CASE EVENT DATE: 201312
